FAERS Safety Report 9462483 (Version 1)
Quarter: 2013Q3

REPORT INFORMATION
  Report Type: Spontaneous
  Country: US (occurrence: US)
  Receive Date: 20130816
  Receipt Date: 20130816
  Transmission Date: 20140515
  Serious: No
  Sender: FDA-Public Use
  Company Number: US-TEVA-426886USA

PATIENT
  Sex: Female
  Weight: 51.3 kg

DRUGS (3)
  1. PLAN B ONE-STEP [Suspect]
     Indication: MENSTRUATION IRREGULAR
     Dosage: 1.5 MILLIGRAM DAILY;
     Route: 048
     Dates: start: 20130804, end: 20130804
  2. PLAN B ONE-STEP [Suspect]
     Dosage: 1.5 MILLIGRAM DAILY;
     Route: 048
     Dates: start: 20130806, end: 20130806
  3. PROZAC [Concomitant]
     Indication: NERVOUS SYSTEM DISORDER
     Dosage: 90 MILLIGRAM DAILY;
     Route: 048

REACTIONS (1)
  - Breast tenderness [Not Recovered/Not Resolved]
